FAERS Safety Report 4883156-6 (Version None)
Quarter: 2006Q1

REPORT INFORMATION
  Report Type: 
  Country: None (occurrence: None)
  Receive Date: 20060117
  Receipt Date: 20060117
  Transmission Date: 20060701
  Serious: Yes (Death)
  Sender: FDA-Public Use
  Company Number: None

PATIENT
  Age: 31 Year
  Sex: Female
  Weight: 98.7 kg

DRUGS (8)
  1. BUSULFAN UMBILICAL CORD BLOOD [Suspect]
     Dosage: 56 MG/IV
     Route: 042
     Dates: start: 20050723, end: 20050730
  2. CYTOXAN [Suspect]
     Dosage: 60 MG/IV
     Route: 042
     Dates: start: 20050731, end: 20050801
  3. VANCOMYCIN [Concomitant]
  4. ACYCLOVIR [Concomitant]
  5. CYCLOSPORINE [Concomitant]
  6. CIPROFLOXACIN [Concomitant]
  7. CASPOFUNGIN [Concomitant]
  8. IMIPENEM [Concomitant]

REACTIONS (3)
  - CHOLECYSTITIS ACUTE [None]
  - GASTROINTESTINAL DISORDER [None]
  - GRAFT VERSUS HOST DISEASE [None]
